FAERS Safety Report 23903806 (Version 1)
Quarter: 2024Q2

REPORT INFORMATION
  Report Type: Spontaneous
  Country: US (occurrence: US)
  Receive Date: 20240527
  Receipt Date: 20240527
  Transmission Date: 20240716
  Serious: No
  Sender: FDA-Public Use
  Company Number: US-AMGEN-USASP2024101907

PATIENT
  Age: 55 Year
  Sex: Male

DRUGS (1)
  1. AVSOLA [Suspect]
     Active Substance: INFLIXIMAB-AXXQ
     Indication: Hidradenitis
     Dosage: UNK
     Route: 065

REACTIONS (4)
  - Paradoxical psoriasis [Unknown]
  - Stomatitis [Unknown]
  - Off label use [Unknown]
  - Drug ineffective [Unknown]
